FAERS Safety Report 7629525-2 (Version None)
Quarter: 2011Q3

REPORT INFORMATION
  Report Type: 
  Country: None (occurrence: None)
  Receive Date: 20110722
  Receipt Date: 20110310
  Transmission Date: 20111222
  Serious: No
  Sender: FDA-Public Use
  Company Number: US-BAYER-2011-021979

PATIENT
  Age: 58 Year
  Sex: Male
  Weight: 82.54 kg

DRUGS (10)
  1. BETASERON [Suspect]
     Dosage: 0.3 MG, QOD
     Route: 058
  2. NIFEDIPINE [Concomitant]
     Dosage: 30 MG, UNK
  3. GABAPENTIN [Concomitant]
     Dosage: 100 MG, UNK
  4. CALCIUM CARBONATE [Concomitant]
     Dosage: 500 UNK
  5. CLONAZEPAM [Concomitant]
     Dosage: 0.5 MG, UNK
  6. REQUIP [Concomitant]
     Dosage: 1 MG, UNK
  7. ACTONEL [Concomitant]
     Dosage: 35 MG, UNK
  8. VITAMIN D [Concomitant]
     Dosage: 400 U, QD
  9. ASCORBIC ACID [Concomitant]
     Dosage: 100 MG, UNK
  10. PHENOBARB [Concomitant]
     Dosage: 100 MG, UNK

REACTIONS (5)
  - ACNE [None]
  - RASH MACULAR [None]
  - INJECTION SITE ERYTHEMA [None]
  - MASS [None]
  - RASH [None]
